FAERS Safety Report 21453980 (Version 1)
Quarter: 2022Q4

REPORT INFORMATION
  Report Type: Spontaneous
  Country: US (occurrence: US)
  Receive Date: 20221013
  Receipt Date: 20221013
  Transmission Date: 20230113
  Serious: No
  Sender: FDA-Public Use
  Company Number: US-SANOFI-01314277

PATIENT
  Age: 6 Year
  Sex: Female

DRUGS (1)
  1. DUPIXENT [Suspect]
     Active Substance: DUPILUMAB
     Dosage: 2 CC

REACTIONS (5)
  - Screaming [Unknown]
  - Crying [Unknown]
  - Injection site discomfort [Unknown]
  - Injection site pain [Unknown]
  - Product use issue [Unknown]
